FAERS Safety Report 5895112-X (Version None)
Quarter: 2008Q3

REPORT INFORMATION
  Report Type: 
  Country: None (occurrence: None)
  Receive Date: 20080924
  Receipt Date: 20080912
  Transmission Date: 20090109
  Serious: Yes (Hospitalization)
  Sender: FDA-Public Use
  Company Number: US-ROCHE-507867

PATIENT
  Sex: Female
  Weight: 66.2 kg

DRUGS (9)
  1. CAPECITABINE [Suspect]
     Dosage: 3500 MG, QD
     Route: 065
     Dates: start: 20070619, end: 20070718
  2. CAPECITABINE [Suspect]
     Dosage: 3500 MG, QD
     Route: 065
     Dates: start: 20070619, end: 20070718
  3. BLINDED BEVACIZUMAB [Suspect]
     Dosage: 1020 MG, Q3W
     Route: 042
     Dates: start: 20070619
  4. BLINDED PLACEBO [Suspect]
     Dosage: 1020 MG, Q3W
     Route: 042
     Dates: start: 20070619
  5. OXYCODONE HCL [Concomitant]
     Indication: PAIN
     Dosage: 10 MG, PRN
     Route: 048
  6. LORAZEPAM [Concomitant]
     Indication: NAUSEA
     Dosage: 0.5 MG, PRN
     Route: 048
  7. LORTAB [Concomitant]
     Indication: PAIN
     Dosage: 1 TABLET, PRN
     Route: 048
  8. SERTRALINE [Concomitant]
     Indication: DRUG USE FOR UNKNOWN INDICATION
     Dosage: 100 MG, QD
  9. TRAZODONE HCL [Concomitant]
     Indication: DRUG USE FOR UNKNOWN INDICATION
     Dosage: 100 MG, QHS
     Route: 048

REACTIONS (2)
  - ILEITIS [None]
  - JEJUNITIS [None]
